FAERS Safety Report 12772664 (Version 1)
Quarter: 2016Q3

REPORT INFORMATION
  Report Type: Spontaneous
  Country: US (occurrence: US)
  Receive Date: 20160922
  Receipt Date: 20160922
  Transmission Date: 20161109
  Serious: Yes (Death, Hospitalization, Other)
  Sender: FDA-Public Use
  Company Number: US-TEVA-694991USA

PATIENT
  Age: 31 Year
  Sex: Female

DRUGS (2)
  1. LYBREL [Suspect]
     Active Substance: ETHINYL ESTRADIOL\LEVONORGESTREL
     Route: 065
  2. SEASONIQUE [Suspect]
     Active Substance: ETHINYL ESTRADIOL\LEVONORGESTREL
     Route: 065

REACTIONS (4)
  - Brain injury [Fatal]
  - Brain oedema [Fatal]
  - Thrombosis [Fatal]
  - Intracranial pressure increased [Fatal]
